FAERS Safety Report 8402831-X (Version None)
Quarter: 2012Q2

REPORT INFORMATION
  Report Type: 
  Country: None (occurrence: None)
  Receive Date: 20120323
  Receipt Date: 20110404
  Transmission Date: 20120825
  Serious: Yes (Hospitalization)
  Sender: FDA-Public Use
  Company Number: 163-21880-11033052

PATIENT
  Age: 80 Year
  Sex: Female
  Weight: 60.8 kg

DRUGS (7)
  1. GEMFIBROZIL [Concomitant]
  2. LISINOPRIL [Concomitant]
  3. DEXAMETHASONE [Concomitant]
  4. REVLIMID [Suspect]
     Indication: MULTIPLE MYELOMA
     Dosage: 25 MG, DAILY FOR 21 DAYS EVERY 28 DAYS, PO; 25 MG, DAILY FOR 21 DAYS EVERY 28 DAYS, PO
     Dates: start: 20101004, end: 20110110
  5. REVLIMID [Suspect]
     Indication: MULTIPLE MYELOMA
     Dosage: 25 MG, DAILY FOR 21 DAYS EVERY 28 DAYS, PO; 25 MG, DAILY FOR 21 DAYS EVERY 28 DAYS, PO
     Dates: start: 20110101
  6. HYDROCODONE BITARTRATE [Concomitant]
  7. LEVOTHYROXINE SODIUM [Concomitant]

REACTIONS (5)
  - PNEUMONIA [None]
  - AMNESIA [None]
  - NASOPHARYNGITIS [None]
  - ASTHENIA [None]
  - DYSPHONIA [None]
